FAERS Safety Report 23911805 (Version 1)
Quarter: 2024Q2

REPORT INFORMATION
  Report Type: Spontaneous
  Country: CN (occurrence: CN)
  Receive Date: 20240528
  Receipt Date: 20240528
  Transmission Date: 20240716
  Serious: Yes (Other)
  Sender: FDA-Public Use
  Company Number: None

PATIENT
  Age: 72 Year
  Sex: Male
  Weight: 57 kg

DRUGS (4)
  1. LIPIODOL [Suspect]
     Active Substance: ETHIODIZED OIL
     Indication: Angiogram
     Route: 042
  2. IOHEXOL [Suspect]
     Active Substance: IOHEXOL
     Indication: Therapeutic embolisation
     Route: 042
     Dates: start: 20240511, end: 20240511
  3. IOHEXOL [Suspect]
     Active Substance: IOHEXOL
     Indication: Angiogram
  4. POLIDOCANOL [Concomitant]
     Active Substance: POLIDOCANOL
     Indication: Product used for unknown indication
     Dates: start: 20240511

REACTIONS (2)
  - Renal impairment [Recovering/Resolving]
  - Product use in unapproved indication [Recovering/Resolving]

NARRATIVE: CASE EVENT DATE: 20240513
